FAERS Safety Report 16942224 (Version 1)
Quarter: 2019Q4

REPORT INFORMATION
  Report Type: Spontaneous
  Country: US (occurrence: US)
  Receive Date: 20191021
  Receipt Date: 20191021
  Transmission Date: 20200122
  Serious: No
  Sender: FDA-Public Use
  Company Number: US-SA-2019SA290106

PATIENT
  Age: 68 Year
  Sex: Female
  Weight: 60.33 kg

DRUGS (4)
  1. TAXOTERE [Suspect]
     Active Substance: DOCETAXEL
     Indication: CHEMOTHERAPY
     Dosage: UNK UNK, UNK
     Dates: start: 201601
  2. CYCLOPHOSPHAMIDE. [Suspect]
     Active Substance: CYCLOPHOSPHAMIDE
     Indication: CHEMOTHERAPY
     Dosage: UNK UNK, UNK
     Dates: start: 201601
  3. IBRANCE [Suspect]
     Active Substance: PALBOCICLIB
     Indication: CHEMOTHERAPY
     Dosage: UNK UNK, UNK
     Route: 065
  4. VERZENIO [Suspect]
     Active Substance: ABEMACICLIB
     Indication: CHEMOTHERAPY
     Dosage: UNK UNK, BID (150MG TABLETS BY MOUTH TWICE DAILY, FOR 2 WEEKS)
     Route: 048

REACTIONS (5)
  - Nausea [Unknown]
  - Vomiting [Unknown]
  - Alopecia [Unknown]
  - Dehydration [Unknown]
  - Cough [Not Recovered/Not Resolved]
